FAERS Safety Report 8571023 (Version 2)
Quarter: 2012Q4

REPORT INFORMATION
  Report Type: 
  Country: US (occurrence: US)
  Receive Date: 20120521
  Receipt Date: 20121009
  Transmission Date: 20130627
  Serious: Yes (Other)
  Sender: FDA-Public Use
  Company Number: US-US-EMD SERONO, INC.-7132333

PATIENT
  Age: 50 None
  Sex: Female
  Weight: 89 kg

DRUGS (8)
  1. REBIF [Suspect]
     Indication: MULTIPLE SCLEROSIS
     Route: 058
     Dates: start: 20090715, end: 201001
  2. REBIF [Suspect]
     Route: 058
     Dates: start: 201001
  3. REBIF [Suspect]
     Route: 058
  4. CYMBALTA [Concomitant]
     Indication: DEPRESSION
  5. WELLBUTRIN [Concomitant]
     Indication: SMOKING CESSATION THERAPY
  6. FLEXERIL [Concomitant]
     Indication: MUSCLE RELAXANT THERAPY
  7. METHOCARBAMOL [Concomitant]
     Indication: MUSCLE RELAXANT THERAPY
  8. KLONOPIN [Concomitant]
     Indication: ANXIETY

REACTIONS (3)
  - Type 2 diabetes mellitus [Recovering/Resolving]
  - Muscle spasms [Not Recovered/Not Resolved]
  - Injection site pain [Not Recovered/Not Resolved]
